FAERS Safety Report 23067118 (Version 2)
Quarter: 2023Q4

REPORT INFORMATION
  Report Type: Spontaneous
  Country: RU (occurrence: None)
  Receive Date: 20231016
  Receipt Date: 20231025
  Transmission Date: 20240110
  Serious: Yes (Other)
  Sender: FDA-Public Use
  Company Number: RU-ROCHE-3434960

PATIENT
  Age: 40 Year
  Sex: Female

DRUGS (4)
  1. TRASTUZUMAB [Suspect]
     Active Substance: TRASTUZUMAB
     Indication: HER2 positive breast cancer
     Dosage: 8/6 MG/KG Q3W
     Route: 065
     Dates: start: 20221123
  2. PERTUZUMAB [Suspect]
     Active Substance: PERTUZUMAB
     Indication: HER2 positive breast cancer
     Dosage: 840/420 MG Q3W
     Route: 065
     Dates: start: 20221123
  3. TAMOXIFEN [Suspect]
     Active Substance: TAMOXIFEN
     Indication: HER2 positive breast cancer
     Route: 065
     Dates: start: 20221123
  4. GOSERELIN [Suspect]
     Active Substance: GOSERELIN
     Indication: HER2 positive breast cancer
     Route: 065
     Dates: start: 20221123

REACTIONS (5)
  - Leukopenia [Unknown]
  - Neutropenia [Unknown]
  - Hepatic failure [Unknown]
  - Anaemia [Unknown]
  - Ejection fraction abnormal [Unknown]
